FAERS Safety Report 6181104-2 (Version None)
Quarter: 2009Q2

REPORT INFORMATION
  Report Type: 
  Country: None (occurrence: None)
  Receive Date: 20090504
  Receipt Date: 20090504
  Transmission Date: 20091009
  Serious: No
  Sender: FDA-Public Use
  Company Number: None

PATIENT
  Age: 15 Year
  Sex: Male

DRUGS (1)
  1. POLYETHYLENE GLYCOL 3350 ONE STRENGTH AVAILABLE GENERIC FORMS [Suspect]
     Indication: CONSTIPATION
     Dosage: 17 GRAMS 5 TIMES PER DAY PO
     Route: 048
     Dates: start: 20090101, end: 20090401

REACTIONS (2)
  - DRUG INEFFECTIVE [None]
  - PRODUCT SOLUBILITY ABNORMAL [None]
